FAERS Safety Report 8366576-7 (Version None)
Quarter: 2012Q1

REPORT INFORMATION
  Report Type: 
  Country: None (occurrence: None)
  Receive Date: 20120323
  Receipt Date: 20110523
  Transmission Date: 20120608
  Serious: Yes (Hospitalization, Other)
  Sender: FDA-Public Use
  Company Number: 163-21880-11041166

PATIENT
  Age: 80 Year
  Sex: 0

DRUGS (3)
  1. DEXAMETHASONE [Concomitant]
  2. REVLIMID [Suspect]
     Indication: MULTIPLE MYELOMA
     Dosage: 10 MG, DAILY X 21 DAYS, PO
     Route: 048
     Dates: start: 20101217, end: 20110314
  3. ASPIRIN [Concomitant]

REACTIONS (3)
  - PULMONARY EMBOLISM [None]
  - CARDIAC FAILURE CONGESTIVE [None]
  - ATRIAL FIBRILLATION [None]
